APPROVED DRUG PRODUCT: EXEMESTANE
Active Ingredient: EXEMESTANE
Strength: 25MG
Dosage Form/Route: TABLET;ORAL
Application: A206421 | Product #001
Applicant: AMNEAL PHARMACEUTICALS OF NEW YORK LLC
Approved: Dec 28, 2018 | RLD: No | RS: No | Type: DISCN